FAERS Safety Report 25860829 (Version 1)
Quarter: 2025Q3

REPORT INFORMATION
  Report Type: Spontaneous
  Country: US (occurrence: US)
  Receive Date: 20250929
  Receipt Date: 20250929
  Transmission Date: 20251020
  Serious: No
  Sender: SANOFI AVENTIS
  Company Number: US-SA-2025SA289622

PATIENT
  Age: 56 Year
  Sex: Male
  Weight: 74.8 kg

DRUGS (8)
  1. DUPIXENT [Suspect]
     Active Substance: DUPILUMAB
     Indication: Asthma
     Dosage: 300 MG, QOW
     Route: 058
  2. DULOXETINE [Suspect]
     Active Substance: DULOXETINE
     Indication: Anxiety
     Route: 065
  3. DOCUSATE SODIUM [Concomitant]
     Active Substance: DOCUSATE SODIUM
  4. ACETAMINOPHEN\HYDROCODONE [Concomitant]
     Active Substance: ACETAMINOPHEN\HYDROCODONE
  5. DIAZEPAM [Concomitant]
     Active Substance: DIAZEPAM
  6. ALLOPURINOL [Concomitant]
     Active Substance: ALLOPURINOL
  7. CEPHALEXIN [Concomitant]
     Active Substance: CEPHALEXIN
  8. MODERNA COVID-19 VACCINE [Concomitant]
     Active Substance: ELASOMERAN

REACTIONS (5)
  - Somnolence [Unknown]
  - Hot flush [Unknown]
  - Cold sweat [Unknown]
  - Intrusive thoughts [Unknown]
  - Pain [Unknown]

NARRATIVE: CASE EVENT DATE: 20250923
